FAERS Safety Report 22157851 (Version 1)
Quarter: 2023Q1

REPORT INFORMATION
  Report Type: Spontaneous
  Country: US (occurrence: US)
  Receive Date: 20230330
  Receipt Date: 20230330
  Transmission Date: 20230418
  Serious: No
  Sender: FDA-Public Use
  Company Number: US-BAYER-2023A026925

PATIENT
  Age: 64 Year
  Sex: Female

DRUGS (6)
  1. LAROTRECTINIB [Suspect]
     Active Substance: LAROTRECTINIB
     Indication: HER2 negative breast cancer
  2. LAROTRECTINIB [Suspect]
     Active Substance: LAROTRECTINIB
     Indication: Metastases to lung
  3. LAROTRECTINIB [Suspect]
     Active Substance: LAROTRECTINIB
     Indication: Metastases to pleura
  4. LAROTRECTINIB [Suspect]
     Active Substance: LAROTRECTINIB
     Indication: Metastases to lymph nodes
  5. LAROTRECTINIB [Suspect]
     Active Substance: LAROTRECTINIB
     Indication: Metastases to chest wall
  6. LAROTRECTINIB [Suspect]
     Active Substance: LAROTRECTINIB
     Indication: Metastases to bone

REACTIONS (2)
  - Anaemia [None]
  - Oedema [None]
